FAERS Safety Report 6974146-8 (Version None)
Quarter: 2010Q3

REPORT INFORMATION
  Report Type: 
  Country: None (occurrence: None)
  Receive Date: 20100909
  Receipt Date: 20100831
  Transmission Date: 20110219
  Serious: Yes (Disabling)
  Sender: FDA-Public Use
  Company Number: DE-ABBOTT-10P-062-0667511-00

PATIENT
  Age: 33 Year
  Sex: Male

DRUGS (7)
  1. KALETRA [Suspect]
     Indication: HIV INFECTION
     Route: 048
     Dates: start: 20070701, end: 20070801
  2. KALETRA [Suspect]
     Dates: start: 20070801
  3. TRUVADA [Suspect]
     Indication: HIV INFECTION
     Route: 048
     Dates: start: 20070701, end: 20070801
  4. TRUVADA [Suspect]
     Dates: start: 20070801
  5. RETROVIR [Concomitant]
     Indication: HIV INFECTION
     Route: 048
     Dates: start: 20070730
  6. SALUTEC [Concomitant]
     Indication: HYPERTENSION
     Route: 048
     Dates: start: 20080205
  7. BACTRIM [Concomitant]
     Indication: PROPHYLAXIS
     Dates: start: 20070701, end: 20080701

REACTIONS (5)
  - DEMYELINATING POLYNEUROPATHY [None]
  - MUSCLE SPASMS [None]
  - PAIN IN EXTREMITY [None]
  - PARAESTHESIA [None]
  - POLYNEUROPATHY [None]
